FAERS Safety Report 23874055 (Version 1)
Quarter: 2024Q2

REPORT INFORMATION
  Report Type: Spontaneous
  Country: PH (occurrence: PH)
  Receive Date: 20240520
  Receipt Date: 20240520
  Transmission Date: 20240716
  Serious: Yes (Life-Threatening, Hospitalization, Other)
  Sender: FDA-Public Use
  Company Number: PH-EPICPHARMA-PH-2024EPCLIT00507

PATIENT
  Age: 66 Year
  Sex: Female

DRUGS (2)
  1. AMIODARONE HYDROCHLORIDE [Suspect]
     Active Substance: AMIODARONE HYDROCHLORIDE
     Indication: Supraventricular tachycardia
     Route: 042
  2. AMIODARONE HYDROCHLORIDE [Suspect]
     Active Substance: AMIODARONE HYDROCHLORIDE
     Dosage: STARTED AT 1MG/MIN FOR 6 HOURS THEN 0.5MG/MIN FOR 18 HOURS
     Route: 065

REACTIONS (2)
  - Acute hepatic failure [Unknown]
  - Product use in unapproved indication [Unknown]
